FAERS Safety Report 13700228 (Version 1)
Quarter: 2017Q2

REPORT INFORMATION
  Report Type: Spontaneous
  Country: US (occurrence: US)
  Receive Date: 20170629
  Receipt Date: 20170629
  Transmission Date: 20170830
  Serious: Yes (Hospitalization)
  Sender: FDA-Public Use
  Company Number: PHHY2017US090242

PATIENT
  Age: 64 Year
  Sex: Male

DRUGS (10)
  1. LEVOTHYROXINE. [Concomitant]
     Active Substance: LEVOTHYROXINE
     Indication: PRODUCT USED FOR UNKNOWN INDICATION
     Dosage: 0.075 MG, QD
     Route: 065
  2. ROTIGOTINE [Concomitant]
     Active Substance: ROTIGOTINE
     Indication: PARKINSON^S DISEASE
     Dosage: 2 G, QD
     Route: 065
  3. ENTACAPONE. [Concomitant]
     Active Substance: ENTACAPONE
     Indication: PARKINSON^S DISEASE
     Route: 065
  4. PRAMIPEXOLE. [Concomitant]
     Active Substance: PRAMIPEXOLE
     Indication: PARKINSON^S DISEASE
     Dosage: 1.5 MG, TID
     Route: 065
  5. TAMSULOSIN [Concomitant]
     Active Substance: TAMSULOSIN
     Indication: PRODUCT USED FOR UNKNOWN INDICATION
     Dosage: 0.4 MG, QD
     Route: 065
  6. OXYBUTYNIN [Concomitant]
     Active Substance: OXYBUTYNIN
     Indication: PRODUCT USED FOR UNKNOWN INDICATION
     Dosage: 5 MG, TID
     Route: 065
  7. CARBIDOPA/LEVODOPA [Concomitant]
     Active Substance: CARBIDOPA\LEVODOPA
     Indication: PARKINSON^S DISEASE
     Dosage: CARBIDOPA 25MG/LEVODOPA 100 MG
     Route: 065
  8. PRAZOSIN. [Concomitant]
     Active Substance: PRAZOSIN
     Indication: POST-TRAUMATIC STRESS DISORDER
     Dosage: 7 MG, QHS
     Route: 065
  9. AMANTADINE. [Suspect]
     Active Substance: AMANTADINE HYDROCHLORIDE
     Indication: PARKINSON^S DISEASE
     Dosage: 100 MG, BID
     Route: 065
  10. MIRTAZAPINE. [Concomitant]
     Active Substance: MIRTAZAPINE
     Indication: PARKINSON^S DISEASE
     Dosage: 30 MG, QHS
     Route: 065

REACTIONS (14)
  - Persecutory delusion [Recovered/Resolved]
  - Agitation [Recovered/Resolved]
  - Hallucination, visual [Recovered/Resolved]
  - Delirium [Recovered/Resolved]
  - Mental status changes [Recovered/Resolved]
  - Hallucination, tactile [Recovered/Resolved]
  - Waxy flexibility [Recovered/Resolved]
  - Depressed level of consciousness [Recovered/Resolved]
  - Formication [Recovered/Resolved]
  - Disorientation [Recovered/Resolved]
  - Depression suicidal [Recovered/Resolved]
  - Insomnia [Recovered/Resolved]
  - Withdrawal syndrome [Unknown]
  - Delusion [Recovered/Resolved]
